FAERS Safety Report 18246490 (Version 4)
Quarter: 2021Q4

REPORT INFORMATION
  Report Type: Spontaneous
  Country: PL (occurrence: PL)
  Receive Date: 20200909
  Receipt Date: 20211015
  Transmission Date: 20220303
  Serious: Yes (Other)
  Sender: FDA-Public Use
  Company Number: PL-ROCHE-2673247

PATIENT
  Age: 18 Year
  Sex: Male
  Weight: 70 kg

DRUGS (2)
  1. HEMLIBRA [Suspect]
     Active Substance: EMICIZUMAB-KXWH
     Indication: Product used for unknown indication
     Dosage: LOADING - 3 MG/KG/7 DAYS X 4, MAINTENANCE - 3 MG/KG/14 DAYS?ADMINISTRATION OF HEMLIBRA WAS ON 17/AUG
     Route: 058
     Dates: start: 20200330
  2. NOVOSEVEN [Concomitant]
     Active Substance: COAGULATION FACTOR VIIA RECOMBINANT HUMAN
     Route: 042
     Dates: start: 20200831

REACTIONS (3)
  - Haematoma [Unknown]
  - Soft tissue haemorrhage [Unknown]
  - Injury [Unknown]
